FAERS Safety Report 5370559-9 (Version None)
Quarter: 2007Q2

REPORT INFORMATION
  Report Type: 
  Country: None (occurrence: None)
  Receive Date: 20070626
  Receipt Date: 20070618
  Transmission Date: 20071010
  Serious: Yes (Other)
  Sender: FDA-Public Use
  Company Number: PHEH2007US08942

PATIENT
  Sex: Female

DRUGS (1)
  1. FEMARA [Suspect]
     Route: 065
     Dates: start: 20070201

REACTIONS (1)
  - BLOOD POTASSIUM DECREASED [None]
